FAERS Safety Report 19739474 (Version 1)
Quarter: 2021Q3

REPORT INFORMATION
  Report Type: Spontaneous
  Country: US (occurrence: US)
  Receive Date: 20210820
  Receipt Date: 20210820
  Transmission Date: 20211014
  Serious: No
  Sender: FDA-Public Use
  Company Number: None

PATIENT

DRUGS (1)
  1. ROCEPHIN [Suspect]
     Active Substance: CEFTRIAXONE SODIUM

REACTIONS (9)
  - Hyperhidrosis [None]
  - Palpitations [None]
  - Unresponsive to stimuli [None]
  - Arrhythmia [None]
  - Incorrect drug administration rate [None]
  - Hypersensitivity [None]
  - Restlessness [None]
  - Pulse absent [None]
  - Tachycardia [None]
